FAERS Safety Report 4831277-6 (Version None)
Quarter: 2005Q4

REPORT INFORMATION
  Report Type: 
  Country: None (occurrence: None)
  Receive Date: 20051118
  Receipt Date: 20051109
  Transmission Date: 20060501
  Serious: Yes (Other)
  Sender: FDA-Public Use
  Company Number: JP-AVENTIS-200513335JP

PATIENT
  Age: 84 Year
  Sex: Female

DRUGS (8)
  1. FUROSEMIDE [Suspect]
     Indication: CARDIAC FAILURE
  2. VALPROATE SODIUM [Suspect]
  3. PAROXETINE HYDROCHLORIDE [Suspect]
  4. MILRINONE [Suspect]
     Indication: CARDIAC FAILURE
  5. LIDOCAINE [Concomitant]
     Indication: VENTRICULAR TACHYCARDIA
  6. APRINDINE [Concomitant]
     Indication: VENTRICULAR TACHYCARDIA
  7. NIFEKALANT [Concomitant]
     Indication: VENTRICULAR TACHYCARDIA
  8. MAGNESIUM SULFATE [Concomitant]
     Indication: VENTRICULAR TACHYCARDIA

REACTIONS (4)
  - DRUG INEFFECTIVE [None]
  - HYPOKALAEMIA [None]
  - TORSADE DE POINTES [None]
  - VENTRICULAR TACHYCARDIA [None]
